FAERS Safety Report 19934378 (Version 3)
Quarter: 2021Q4

REPORT INFORMATION
  Report Type: Spontaneous
  Country: DE (occurrence: DE)
  Receive Date: 20211008
  Receipt Date: 20211216
  Transmission Date: 20220303
  Serious: Yes (Death, Hospitalization, Other)
  Sender: FDA-Public Use
  Company Number: DE-009507513-2110DEU001187

PATIENT
  Age: 68 Year
  Sex: Female

DRUGS (4)
  1. KEYTRUDA [Suspect]
     Active Substance: PEMBROLIZUMAB
     Indication: Hypopharyngeal cancer recurrent
     Dosage: 200MG EVERY 3 WEEKS
     Dates: start: 202007, end: 202108
  2. CISPLATIN [Suspect]
     Active Substance: CISPLATIN
     Indication: Hypopharyngeal cancer recurrent
     Dosage: UNK
     Dates: start: 202007, end: 202108
  3. FLUOROURACIL [Suspect]
     Active Substance: FLUOROURACIL
     Indication: Hypopharyngeal cancer recurrent
     Dosage: UNK
     Dates: start: 202007, end: 202108
  4. CARBOPLATIN [Concomitant]
     Active Substance: CARBOPLATIN
     Indication: Hypopharyngeal cancer recurrent
     Dosage: UNK

REACTIONS (7)
  - Death [Fatal]
  - Malignant neoplasm progression [Unknown]
  - Acute kidney injury [Recovered/Resolved]
  - Vomiting [Recovered/Resolved]
  - Colitis [Recovered/Resolved]
  - General physical health deterioration [Recovered/Resolved]
  - Liver disorder [Unknown]

NARRATIVE: CASE EVENT DATE: 20200901
